FAERS Safety Report 7211669-0 (Version None)
Quarter: 2011Q1

REPORT INFORMATION
  Report Type: 
  Country: None (occurrence: None)
  Receive Date: 20110105
  Receipt Date: 20101229
  Transmission Date: 20110831
  Serious: Yes (Other)
  Sender: FDA-Public Use
  Company Number: US-AMGEN-QUU433113

PATIENT

DRUGS (11)
  1. ELTROMBOPAG [Concomitant]
     Dosage: 25 MG, BID
     Route: 048
     Dates: start: 20090112
  2. GLYBURIDE AND METFORMIN HYDROCHLORIDE [Concomitant]
     Dosage: UNK UNK, QD
  3. OXYCONTIN [Concomitant]
     Dosage: 10 MG, QD
  4. OXYCODONE HYDROCHLORIDE [Concomitant]
     Dosage: 10 MG, QD
  5. LANSOPRAZOLE [Concomitant]
     Dosage: 30 MG, QD
  6. NPLATE [Suspect]
     Indication: IDIOPATHIC THROMBOCYTOPENIC PURPURA
     Dosage: 807 A?G, QWK
     Route: 058
     Dates: start: 20090122, end: 20090409
  7. IMMUNE GLOBULIN NOS [Concomitant]
  8. LASIX [Concomitant]
     Dosage: 20 MG, BID
  9. NPLATE [Suspect]
     Dates: start: 20090122, end: 20090409
  10. PREDNISONE [Concomitant]
     Dosage: 40 MG, QOD
     Dates: start: 20061003
  11. POTASSIUM CHLORIDE [Concomitant]
     Dosage: 20 A?G, QD

REACTIONS (2)
  - PLATELET COUNT DECREASED [None]
  - PLATELET COUNT INCREASED [None]
